FAERS Safety Report 23682188 (Version 1)
Quarter: 2024Q1

REPORT INFORMATION
  Report Type: Spontaneous
  Country: US (occurrence: None)
  Receive Date: 20240327
  Receipt Date: 20240327
  Transmission Date: 20240410
  Serious: Yes (Hospitalization)
  Sender: FDA-Public Use
  Company Number: None

PATIENT
  Age: 37 Year
  Sex: Female
  Weight: 60.75 kg

DRUGS (9)
  1. TOPIRAMATE [Suspect]
     Active Substance: TOPIRAMATE
     Indication: Headache
     Dates: start: 20240203, end: 20240313
  2. TOPIRAMATE [Suspect]
     Active Substance: TOPIRAMATE
     Indication: Headache
  3. ESTROGENS [Concomitant]
     Active Substance: ESTROGENS
  4. PROGESTERONE [Concomitant]
     Active Substance: PROGESTERONE
  5. TESTOSTERONE [Concomitant]
     Active Substance: TESTOSTERONE
  6. IBUPROFEN [Concomitant]
     Active Substance: IBUPROFEN
  7. TRULANCE [Concomitant]
     Active Substance: PLECANATIDE
  8. VITAMIN D [Concomitant]
     Active Substance: VITAMIN D NOS
  9. PROBIOTICS NOS [Concomitant]
     Active Substance: PROBIOTICS NOS

REACTIONS (6)
  - Vision blurred [None]
  - Blindness [None]
  - Blindness [None]
  - Intraocular pressure increased [None]
  - Lens dislocation [None]
  - Night blindness [None]

NARRATIVE: CASE EVENT DATE: 20240213
